FAERS Safety Report 8108471-4 (Version None)
Quarter: 2012Q1

REPORT INFORMATION
  Report Type: 
  Country: None (occurrence: None)
  Receive Date: 20120202
  Receipt Date: 20120130
  Transmission Date: 20120608
  Serious: Yes (Death)
  Sender: FDA-Public Use
  Company Number: PHHY2010CA59557

PATIENT
  Sex: Female

DRUGS (3)
  1. ZOMETA [Suspect]
     Indication: RENAL CELL CARCINOMA
     Dosage: 3 MG EVERY 4 WEEKS
     Route: 042
     Dates: start: 20100906
  2. CHEMOTHERAPEUTICS [Concomitant]
  3. ZOMETA [Suspect]
     Dosage: 4 MG, EVERY 8 WEEKS
     Route: 042
     Dates: end: 20111116

REACTIONS (4)
  - BODY TEMPERATURE INCREASED [None]
  - DEATH [None]
  - ARTHRALGIA [None]
  - FEELING ABNORMAL [None]
